FAERS Safety Report 5933660-4 (Version None)
Quarter: 2008Q4

REPORT INFORMATION
  Report Type: 
  Country: None (occurrence: None)
  Receive Date: 20081024
  Receipt Date: 20081010
  Transmission Date: 20090506
  Serious: Yes (Disabling)
  Sender: FDA-Public Use
  Company Number: 8037521

PATIENT
  Age: 42 Year
  Sex: Female

DRUGS (3)
  1. PREDNISOLONE [Suspect]
     Dosage: 5 MG /D
  2. HYDROXYCHLOROQUINE SULFATE [Suspect]
     Dosage: 400 MG /D
  3. MELOXICAM [Suspect]
     Dosage: 15 MG/D

REACTIONS (3)
  - DEAFNESS UNILATERAL [None]
  - EAR DISORDER [None]
  - TINNITUS [None]
